FAERS Safety Report 9236980 (Version 1)
Quarter: 2013Q2

REPORT INFORMATION
  Report Type: Spontaneous
  Country: GB (occurrence: None)
  Receive Date: 20130415
  Receipt Date: 20130415
  Transmission Date: 20140414
  Serious: Yes (Hospitalization)
  Sender: FDA-Public Use
  Company Number: AUR-APL-2013-03090

PATIENT
  Age: 71 Year
  Sex: Female
  Weight: 67.6 kg

DRUGS (8)
  1. LISINOPRIL (LISINOPRIL) [Suspect]
     Indication: HYPERTENSION
     Route: 048
     Dates: start: 20060908, end: 20130206
  2. ATENOLOL (ATENOLOL) [Suspect]
     Indication: HYPERTENSION
     Route: 048
     Dates: start: 20011016
  3. SUNITINIB MALATE [Suspect]
     Indication: METASTATIC MALIGNANT MELANOMA
     Dosage: 50 MG, 1 IN 1 D), ORAL
     Route: 048
     Dates: start: 20130115, end: 20130205
  4. CARMELLOSE (CARMELLOSE) [Concomitant]
     Indication: PRODUCT USED FOR UNKNOWN INDICATION
  5. CO-CODAMOL (PANADEINE CO) [Concomitant]
  6. LANSOPRAZOLE (LANSOPRAZOLE) [Concomitant]
  7. SIMVASTATIN (SIMVASTATIN) [Suspect]
     Route: 048
     Dates: start: 20130115, end: 20130205
  8. SIMVASTATIN (SIMVASTATIN) [Suspect]
     Route: 048
     Dates: start: 20130115, end: 20130205

REACTIONS (4)
  - Right ventricular failure [None]
  - Oedema peripheral [None]
  - Pulmonary hypertension [None]
  - Pulmonary embolism [None]
